FAERS Safety Report 13436560 (Version 1)
Quarter: 2017Q2

REPORT INFORMATION
  Report Type: Other
  Country: DE (occurrence: DE)
  Receive Date: 20170413
  Receipt Date: 20170413
  Transmission Date: 20170830
  Serious: Yes (Death)
  Sender: FDA-Public Use
  Company Number: DE-MEDAC PHARMA, INC.-1065347

PATIENT
  Age: 79 Year
  Sex: Male

DRUGS (1)
  1. METHOTREXATE. [Suspect]
     Active Substance: METHOTREXATE
     Dates: start: 2013, end: 2013

REACTIONS (3)
  - Drug prescribing error [Fatal]
  - Arrhythmia [Fatal]
  - Accidental overdose [Fatal]

NARRATIVE: CASE EVENT DATE: 201310
